FAERS Safety Report 8409833-8 (Version None)
Quarter: 2012Q2

REPORT INFORMATION
  Report Type: 
  Country: None (occurrence: None)
  Receive Date: 20120605
  Receipt Date: 20120531
  Transmission Date: 20120825
  Serious: Yes (Other)
  Sender: FDA-Public Use
  Company Number: US-PFIZER INC-2007041038

PATIENT
  Sex: Male

DRUGS (16)
  1. NEXIUM [Concomitant]
     Indication: GASTROOESOPHAGEAL REFLUX DISEASE
     Dosage: 40 MG, DAILY
     Route: 048
  2. CARVEDILOL [Concomitant]
     Dosage: UNK
  3. CHLORTHALIDONE [Concomitant]
     Dosage: UNK
  4. GEODON [Suspect]
     Indication: SCHIZOPHRENIA
     Dosage: 80 MG, 2X/DAY
     Route: 048
  5. HUMULIN R [Concomitant]
     Dosage: UNK
  6. LIPITOR [Concomitant]
     Dosage: UNK
     Route: 048
  7. BUSPAR [Concomitant]
     Dosage: UNK
  8. WELLBUTRIN [Concomitant]
     Dosage: UNK
  9. VESICARE [Concomitant]
     Dosage: UNK
     Route: 048
  10. ARTHROTEC [Concomitant]
     Dosage: UNK
     Route: 048
  11. DEPAKOTE [Concomitant]
     Dosage: UNK
     Route: 048
  12. ROPINIROLE [Concomitant]
     Indication: RESTLESS LEGS SYNDROME
     Dosage: 1 MG, DAILY
     Route: 048
  13. PAXIL [Concomitant]
     Dosage: UNK
  14. AVAPRO [Concomitant]
     Dosage: 75 MG, DAILY
     Route: 048
  15. TRICOR [Concomitant]
     Dosage: UNK
  16. GABAPENTIN [Concomitant]
     Dosage: UNK

REACTIONS (3)
  - TARDIVE DYSKINESIA [None]
  - PAIN IN JAW [None]
  - MUSCLE TIGHTNESS [None]
